FAERS Safety Report 4462718-4 (Version None)
Quarter: 2004Q3

REPORT INFORMATION
  Report Type: 
  Country: None (occurrence: None)
  Receive Date: 20040927
  Receipt Date: 20040913
  Transmission Date: 20050211
  Serious: Yes (Disabling)
  Sender: FDA-Public Use
  Company Number: 200406403

PATIENT
  Age: 75 Year
  Sex: Female

DRUGS (2)
  1. PRED FORTE [Suspect]
     Indication: POSTOPERATIVE CARE
     Dosage: 1 DROP QID EYE
     Dates: start: 20030804
  2. ACULAR [Concomitant]

REACTIONS (5)
  - BLINDNESS UNILATERAL [None]
  - CATARACT [None]
  - EYE PAIN [None]
  - HEADACHE [None]
  - HYPERTENSION [None]
